FAERS Safety Report 6241446-9 (Version None)
Quarter: 2009Q2

REPORT INFORMATION
  Report Type: 
  Country: None (occurrence: None)
  Receive Date: 20090619
  Receipt Date: 20090619
  Transmission Date: 20091009
  Serious: No
  Sender: FDA-Public Use
  Company Number: None

PATIENT
  Age: 34 Year
  Sex: Male
  Weight: 90.7194 kg

DRUGS (1)
  1. ZICAM [Suspect]

REACTIONS (1)
  - ANOSMIA [None]
